FAERS Safety Report 5251256-7 (Version None)
Quarter: 2007Q1

REPORT INFORMATION
  Report Type: 
  Country: None (occurrence: None)
  Receive Date: 20070228
  Receipt Date: 20061218
  Transmission Date: 20070707
  Serious: Yes (Hospitalization, Other)
  Sender: FDA-Public Use
  Company Number: US-GLAXOSMITHKLINE-A0631926A

PATIENT
  Age: 39 Year
  Sex: Female

DRUGS (7)
  1. LAMICTAL [Suspect]
     Indication: BIPOLAR DISORDER
     Dosage: 100MG TWICE PER DAY
     Route: 048
  2. ZONEGRAN [Concomitant]
  3. CITRUCEL [Concomitant]
  4. TEGRETOL [Concomitant]
  5. KLONOPIN [Concomitant]
  6. ANAFRANIL [Concomitant]
  7. BENADRYL [Concomitant]

REACTIONS (1)
  - PANCREATITIS [None]
